FAERS Safety Report 19960167 (Version 1)
Quarter: 2021Q4

REPORT INFORMATION
  Report Type: Spontaneous
  Country: GB (occurrence: GB)
  Receive Date: 20211015
  Receipt Date: 20211015
  Transmission Date: 20220303
  Serious: Yes (Hospitalization, Other)
  Sender: FDA-Public Use
  Company Number: None

PATIENT
  Age: 47 Year
  Sex: Male
  Weight: 88.9 kg

DRUGS (1)
  1. TERBINAFINE HYDROCHLORIDE [Suspect]
     Active Substance: TERBINAFINE HYDROCHLORIDE
     Indication: Ill-defined disorder
     Dosage: 250 MG
     Route: 048
     Dates: start: 20201227, end: 20210122

REACTIONS (5)
  - Vulvovaginal rash [Unknown]
  - Rash [Unknown]
  - Rash erythematous [Unknown]
  - Dermatitis [Unknown]
  - Pruritus [Unknown]
